FAERS Safety Report 6556825-X (Version None)
Quarter: 2010Q1

REPORT INFORMATION
  Report Type: 
  Country: None (occurrence: None)
  Receive Date: 20100128
  Receipt Date: 20100115
  Transmission Date: 20100710
  Serious: Yes (Other)
  Sender: FDA-Public Use
  Company Number: PHEH2010US00852

PATIENT

DRUGS (1)
  1. RECLAST [Suspect]
     Dosage: UNK

REACTIONS (1)
  - FRACTURE [None]
